FAERS Safety Report 23863432 (Version 2)
Quarter: 2024Q2

REPORT INFORMATION
  Report Type: Report from Study
  Country: CA (occurrence: CA)
  Receive Date: 20240516
  Receipt Date: 20240516
  Transmission Date: 20240716
  Serious: Yes (Other)
  Sender: FDA-Public Use
  Company Number: CA-SAMSUNG BIOEPIS-SB-2024-13247

PATIENT
  Age: 25 Year
  Sex: Female

DRUGS (2)
  1. HADLIMA [Suspect]
     Active Substance: ADALIMUMAB-BWWD
     Indication: Ankylosing spondylitis
     Route: 065
  2. HADLIMA [Suspect]
     Active Substance: ADALIMUMAB-BWWD
     Route: 058
     Dates: start: 2023

REACTIONS (5)
  - Ear infection [Recovering/Resolving]
  - Ear pain [Unknown]
  - Nasopharyngitis [Unknown]
  - Deafness unilateral [Recovering/Resolving]
  - Off label use [Unknown]

NARRATIVE: CASE EVENT DATE: 20240101
